FAERS Safety Report 24432427 (Version 1)
Quarter: 2024Q4

REPORT INFORMATION
  Report Type: Spontaneous
  Country: US (occurrence: US)
  Receive Date: 20241014
  Receipt Date: 20241014
  Transmission Date: 20250115
  Serious: No
  Sender: SANOFI AVENTIS
  Company Number: US-SA-2024SA293668

PATIENT
  Age: 62 Year
  Sex: Female
  Weight: 75 kg

DRUGS (16)
  1. DUPIXENT [Suspect]
     Active Substance: DUPILUMAB
     Indication: Asthma
     Dosage: 300 MG, QOW
     Route: 058
     Dates: start: 20240912
  2. ALKA-SELTZER PLUS COLD + COUGH [ACETYLSALICYLIC ACID;CHLORPHENAMINE MA [Concomitant]
  3. MOTRIN IB [Concomitant]
     Active Substance: IBUPROFEN
     Dosage: 20 UNK
  4. TYLENOL [Concomitant]
     Active Substance: ACETAMINOPHEN
  5. METAMUCIL 4 IN 1 FIBER [Concomitant]
  6. TOCOPHEROL [Concomitant]
     Active Substance: TOCOPHEROL
  7. FLUTICASONE PROPIONATE [Concomitant]
     Active Substance: FLUTICASONE PROPIONATE
  8. ALBUTEROL SULFATE [Concomitant]
     Active Substance: ALBUTEROL SULFATE
  9. TOCOPHEROL [Concomitant]
     Active Substance: TOCOPHEROL
  10. VITAMIN C [Concomitant]
     Active Substance: ASCORBIC ACID
  11. AMLODIPINE BESYLATE [Concomitant]
     Active Substance: AMLODIPINE BESYLATE
  12. ALBUTEROL SULFATE [Concomitant]
     Active Substance: ALBUTEROL SULFATE
  13. TRELEGY ELLIPTA [Concomitant]
     Active Substance: FLUTICASONE FUROATE\UMECLIDINIUM BROMIDE\VILANTEROL TRIFENATATE
  14. LISINOPRIL AND HYDROCHLOROTHIAZIDE [Concomitant]
     Active Substance: HYDROCHLOROTHIAZIDE\LISINOPRIL
  15. MIRTAZAPINE [Concomitant]
     Active Substance: MIRTAZAPINE
  16. PROMETHAZINE [Concomitant]
     Active Substance: PROMETHAZINE HYDROCHLORIDE

REACTIONS (6)
  - Chest discomfort [Not Recovered/Not Resolved]
  - Wheezing [Not Recovered/Not Resolved]
  - Cough [Not Recovered/Not Resolved]
  - Productive cough [Not Recovered/Not Resolved]
  - Middle insomnia [Not Recovered/Not Resolved]
  - Dyspnoea [Not Recovered/Not Resolved]
